FAERS Safety Report 6379719-1 (Version None)
Quarter: 2009Q3

REPORT INFORMATION
  Report Type: 
  Country: None (occurrence: None)
  Receive Date: 20090928
  Receipt Date: 20090922
  Transmission Date: 20100115
  Serious: Yes (Other)
  Sender: FDA-Public Use
  Company Number: US-AVENTIS-200917434US

PATIENT
  Sex: Female
  Weight: 81.8 kg

DRUGS (5)
  1. LANTUS [Suspect]
     Route: 058
  2. OPTICLIK (INSULIN INJECTION PEN) [Suspect]
     Dates: start: 20070101
  3. NOVOLOG [Concomitant]
     Dosage: DOSE: UNK
  4. LYSINOPRIL [Concomitant]
     Route: 048
     Dates: start: 19820101
  5. DETROL LA [Concomitant]
     Dosage: DOSE: ONE PER DAY
     Route: 048
     Dates: start: 20080101

REACTIONS (1)
  - CATARACT [None]
